FAERS Safety Report 9487177 (Version 4)
Quarter: 2013Q4

REPORT INFORMATION
  Report Type: Other
  Country: JP (occurrence: JP)
  Receive Date: 20130829
  Receipt Date: 20131105
  Transmission Date: 20140711
  Serious: Yes (Other)
  Sender: FDA-Public Use
  Company Number: JP-BRISTOL-MYERS SQUIBB COMPANY-19140409

PATIENT
  Age: 26 Year
  Sex: Female
  Weight: 46.7 kg

DRUGS (1)
  1. ABILIFY ORAL SOLUTION [Suspect]
     Indication: PSYCHOMOTOR HYPERACTIVITY
     Dosage: 0.1%
     Route: 048
     Dates: start: 20120804, end: 20120805

REACTIONS (3)
  - Abortion spontaneous [Unknown]
  - Foetal death [Unknown]
  - Pregnancy [Recovered/Resolved]
